FAERS Safety Report 6433554-4 (Version None)
Quarter: 2009Q4

REPORT INFORMATION
  Report Type: 
  Country: None (occurrence: None)
  Receive Date: 20091110
  Receipt Date: 20091030
  Transmission Date: 20100525
  Serious: Yes (Hospitalization)
  Sender: FDA-Public Use
  Company Number: NL-RANBAXY-2009RR-28962

PATIENT
  Sex: Male

DRUGS (1)
  1. SERTRALINE HCL [Suspect]
     Indication: DEPRESSION
     Dosage: 100 MG, QD
     Route: 048

REACTIONS (1)
  - CARDIAC DISORDER [None]
